FAERS Safety Report 7768470-9 (Version None)
Quarter: 2011Q3

REPORT INFORMATION
  Report Type: 
  Country: None (occurrence: None)
  Receive Date: 20110922
  Receipt Date: 20100113
  Transmission Date: 20111222
  Serious: No
  Sender: FDA-Public Use
  Company Number: US-ASTRAZENECA-2008UW23305

PATIENT
  Age: 13218 Day
  Sex: Female

DRUGS (13)
  1. LITHIUM CARBONATE [Concomitant]
     Dosage: TAKE 1 C BID AND 2 CS QHS
     Route: 048
     Dates: start: 20031025
  2. TRILEPTAL [Concomitant]
     Route: 048
     Dates: start: 20060101
  3. LIPITOR [Concomitant]
     Dates: start: 20060101
  4. NOVOLIN R; HUMULIN R [Concomitant]
     Dosage: 100 U/ML; 8 UNITS IN ARM AND 8 UNITS PM
     Dates: start: 20060101
  5. SEROQUEL [Suspect]
     Indication: IRRITABILITY
     Dosage: 25-400 MG
     Route: 048
     Dates: start: 20030915, end: 20060601
  6. CELEXA [Concomitant]
     Dosage: 20-40 MG
     Route: 048
     Dates: start: 20030915
  7. NOVOLIN N [Concomitant]
     Dosage: 100 U/ML; 14 UNITS IN ARM AND 22 UNITS DAILY
     Route: 058
     Dates: start: 20060101
  8. ATIVAN [Concomitant]
     Indication: ANXIETY
     Dosage: PRN
     Dates: start: 20060101
  9. PROPYLTHIOURACIL [Concomitant]
     Route: 048
     Dates: start: 20060101
  10. NOVOLIN R; HUMULIN R [Concomitant]
     Dosage: 100 U/ML; USE AS DIRECTED
     Dates: start: 20060101
  11. SEROQUEL [Suspect]
     Dosage: 25-200 MG
     Route: 048
     Dates: start: 20030915
  12. CYMBALTA [Concomitant]
     Dates: start: 20060101
  13. TRAZODONE HYDROCHLORIDE [Concomitant]
     Indication: INSOMNIA
     Dates: start: 20060101

REACTIONS (3)
  - ADVERSE DRUG REACTION [None]
  - TYPE 2 DIABETES MELLITUS [None]
  - TYPE 1 DIABETES MELLITUS [None]
